FAERS Safety Report 16633057 (Version 2)
Quarter: 2019Q3

REPORT INFORMATION
  Report Type: Spontaneous
  Country: US (occurrence: US)
  Receive Date: 20190725
  Receipt Date: 20190909
  Transmission Date: 20191004
  Serious: No
  Sender: FDA-Public Use
  Company Number: US-BEH-2019104572

PATIENT
  Age: 3 Year
  Sex: Male

DRUGS (2)
  1. HUMATE-P [Suspect]
     Active Substance: HUMAN COAGULATION FACTOR VIII/VON WILLEBRAND FACTOR COMPLEX
     Indication: ACQUIRED HAEMOPHILIA
     Dosage: 237 MILLILITER, PRN
     Route: 048
     Dates: start: 20190225
  2. HUMATE-P [Suspect]
     Active Substance: HUMAN COAGULATION FACTOR VIII/VON WILLEBRAND FACTOR COMPLEX
     Indication: ACQUIRED HAEMOPHILIA
     Dosage: 237 MILLILITER, PRN
     Route: 048
     Dates: start: 20190225

REACTIONS (3)
  - Mouth haemorrhage [Unknown]
  - Incorrect route of product administration [Unknown]
  - No adverse event [Unknown]

NARRATIVE: CASE EVENT DATE: 201906
